FAERS Safety Report 8293110-2 (Version None)
Quarter: 2012Q2

REPORT INFORMATION
  Report Type: 
  Country: None (occurrence: None)
  Receive Date: 20120417
  Receipt Date: 20110901
  Transmission Date: 20120825
  Serious: Yes (Hospitalization)
  Sender: FDA-Public Use
  Company Number: US-ASTRAZENECA-2010SE46239

PATIENT
  Age: 55 Year
  Sex: Female

DRUGS (1)
  1. NEXIUM [Suspect]
     Route: 048

REACTIONS (6)
  - MALAISE [None]
  - VOMITING [None]
  - EAR INFECTION [None]
  - IMPAIRED GASTRIC EMPTYING [None]
  - FATIGUE [None]
  - ERUCTATION [None]
